FAERS Safety Report 23658215 (Version 1)
Quarter: 2024Q1

REPORT INFORMATION
  Report Type: Spontaneous
  Country: US (occurrence: US)
  Receive Date: 20240321
  Receipt Date: 20240321
  Transmission Date: 20240410
  Serious: No
  Sender: FDA-Public Use
  Company Number: US-BRISTOL-MYERS SQUIBB COMPANY-2024-045100

PATIENT
  Age: 65 Year
  Sex: Female
  Weight: 65.8 kg

DRUGS (4)
  1. REVLIMID [Suspect]
     Active Substance: LENALIDOMIDE
     Indication: Product used for unknown indication
     Dosage: 28 DAYS (CONTINUOUS)
     Route: 048
     Dates: start: 20150818, end: 20150922
  2. REVLIMID [Suspect]
     Active Substance: LENALIDOMIDE
     Dosage: 28 DAYS (CONTINUOUS)
     Route: 048
     Dates: start: 20151208, end: 20160104
  3. DECADRON [Concomitant]
     Active Substance: DEXAMETHASONE
     Indication: Product used for unknown indication
     Dosage: 20MG ON DAYS 1, 2, 8, 9, 15, 22 AND 23; HIGH DOSE
     Route: 048
     Dates: start: 20150818, end: 20160104
  4. KYPROLIS [Concomitant]
     Active Substance: CARFILZOMIB
     Indication: Product used for unknown indication
     Dosage: DAYS 1, 2, 8, 9, 15, 16
     Route: 042
     Dates: start: 20150818, end: 20160104

REACTIONS (2)
  - Toxicity to various agents [Unknown]
  - Off label use [Unknown]

NARRATIVE: CASE EVENT DATE: 20150101
